FAERS Safety Report 7092138-8 (Version None)
Quarter: 2010Q4

REPORT INFORMATION
  Report Type: 
  Country: None (occurrence: None)
  Receive Date: 20101109
  Receipt Date: 20101101
  Transmission Date: 20110411
  Serious: Yes (Death, Other)
  Sender: FDA-Public Use
  Company Number: JP-AMGEN-JPNCT2010003139

PATIENT

DRUGS (26)
  1. PANITUMUMAB [Suspect]
     Indication: COLORECTAL CANCER
     Dosage: UNK
     Dates: start: 20100706, end: 20100903
  2. IRINOTECAN HYDROCHLORIDE [Concomitant]
     Indication: COLORECTAL CANCER
     Route: 041
  3. IRINOTECAN HYDROCHLORIDE [Concomitant]
     Route: 041
  4. IRINOTECAN HYDROCHLORIDE [Concomitant]
     Route: 041
     Dates: end: 20100706
  5. IRINOTECAN HYDROCHLORIDE [Concomitant]
     Route: 041
     Dates: start: 20100726, end: 20100823
  6. TS 1 [Concomitant]
     Indication: COLORECTAL CANCER
     Route: 048
  7. TS 1 [Concomitant]
     Route: 048
  8. TS 1 [Concomitant]
     Route: 048
     Dates: end: 20100706
  9. CORTICOSTEROIDS [Concomitant]
     Indication: PROPHYLAXIS
     Route: 065
  10. OXALIPLATIN [Concomitant]
     Indication: COLORECTAL CANCER
     Route: 041
  11. OXALIPLATIN [Concomitant]
     Route: 041
     Dates: start: 20100726, end: 20100823
  12. FLUOROURACIL [Concomitant]
     Indication: COLORECTAL CANCER
     Route: 040
     Dates: start: 20100726, end: 20100823
  13. FLUOROURACIL [Concomitant]
     Route: 041
     Dates: start: 20100726, end: 20100823
  14. CALCIUM LEVOFOLINATE [Concomitant]
     Indication: COLORECTAL CANCER
     Route: 041
     Dates: start: 20100726, end: 20100823
  15. RAMELTEON [Concomitant]
     Route: 042
  16. DECADRON PHOSPHATE [Concomitant]
     Route: 042
  17. GRANISETRON HCL [Concomitant]
     Route: 042
  18. LASIX [Concomitant]
     Route: 042
  19. LASIX [Concomitant]
     Route: 048
  20. SOLDACTONE [Concomitant]
     Route: 042
  21. ALDACTONE [Concomitant]
     Route: 048
  22. CODEINE PHOSPHATE [Concomitant]
     Route: 048
  23. LOXONIN [Concomitant]
     Route: 048
  24. OMEPRAZOLE [Concomitant]
     Route: 048
  25. MYSLEE [Concomitant]
     Route: 048
  26. AMOBAN [Concomitant]
     Route: 048

REACTIONS (3)
  - COLORECTAL CANCER [None]
  - DEATH [None]
  - DERMATITIS ACNEIFORM [None]
